FAERS Safety Report 4521948-3 (Version None)
Quarter: 2004Q4

REPORT INFORMATION
  Report Type: 
  Country: None (occurrence: None)
  Receive Date: 20041207
  Receipt Date: 20041123
  Transmission Date: 20050328
  Serious: Yes (Hospitalization, Other)
  Sender: FDA-Public Use
  Company Number: USA040979034

PATIENT
  Age: 85 Year
  Sex: Female

DRUGS (7)
  1. FORTEO [Suspect]
     Dates: start: 20040507, end: 20040101
  2. LISINOPRIL [Concomitant]
  3. BUMETANIDE [Concomitant]
  4. BUSPAR [Concomitant]
  5. METHOTREXATE [Concomitant]
  6. FOLATE SODIUM [Concomitant]
  7. PEPCID [Concomitant]

REACTIONS (6)
  - CONDITION AGGRAVATED [None]
  - DEHYDRATION [None]
  - FATIGUE [None]
  - HYPERCALCAEMIA [None]
  - MALAISE [None]
  - RENAL FAILURE [None]
